FAERS Safety Report 19679492 (Version 1)
Quarter: 2021Q3

REPORT INFORMATION
  Report Type: Spontaneous
  Country: CN (occurrence: CN)
  Receive Date: 20210810
  Receipt Date: 20210810
  Transmission Date: 20211014
  Serious: Yes (Other)
  Sender: FDA-Public Use
  Company Number: CN-LUPIN PHARMACEUTICALS INC.-2021-14038

PATIENT
  Age: 16 Year
  Sex: Female

DRUGS (6)
  1. METHYLPREDNISOLONE. [Suspect]
     Active Substance: METHYLPREDNISOLONE
     Indication: CHRONIC ACTIVE EPSTEIN-BARR VIRUS INFECTION
     Dosage: 2 MILLIGRAM/KILOGRAM ON DAYS 1?7 (L?DEP REGIMEN)
     Route: 065
  2. METHYLPREDNISOLONE. [Suspect]
     Active Substance: METHYLPREDNISOLONE
     Dosage: 1 MILLIGRAM/KILOGRAM TAPERING ON DAYS 15?21 (L?DEP REGIMEN)
     Route: 065
  3. LIPOSOMAL DOXORUBICIN [Suspect]
     Active Substance: DOXORUBICIN HYDROCHLORIDE
     Indication: EPSTEIN-BARR VIRUS INFECTION
     Dosage: 25 MILLIGRAM/SQ. METER ON DAY 1 (L?DEP REGIMEN)
     Route: 065
  4. ETOPOSIDE. [Suspect]
     Active Substance: ETOPOSIDE
     Indication: EPSTEIN-BARR VIRUS INFECTION
     Dosage: 100 MILLIGRAM/SQ. METER ONCE A WEEK ON DAYS 1, 8 AND 15
     Route: 065
  5. PEG/L?ASPARAGINASE [Suspect]
     Active Substance: PEGASPARGASE
     Indication: EPSTEIN-BARR VIRUS INFECTION
     Dosage: UNK (2000 U/M^2 ON DAY 5 (L?DEP REGIMEN))
     Route: 065
  6. METHYLPREDNISOLONE. [Suspect]
     Active Substance: METHYLPREDNISOLONE
     Dosage: 1 MILLIGRAM/KILOGRAM ON DAYS 8?14 (L?DEP REGIMEN)
     Route: 065

REACTIONS (2)
  - Off label use [Unknown]
  - Myelosuppression [Unknown]
